FAERS Safety Report 9262804 (Version 1)
Quarter: 2013Q2

REPORT INFORMATION
  Report Type: Report from Study
  Country: US (occurrence: US)
  Receive Date: 20130430
  Receipt Date: 20130430
  Transmission Date: 20140414
  Serious: Yes (Hospitalization)
  Sender: FDA-Public Use
  Company Number: PHEH2013US009032

PATIENT
  Age: 17 Year
  Sex: Male

DRUGS (4)
  1. TOBI [Suspect]
     Indication: CYSTIC FIBROSIS
     Dosage: 300 MG, BID
     Dates: start: 1997
  2. PULMOZYME [Concomitant]
  3. ALBUTEROL [Concomitant]
  4. ANTIBIOTICS [Concomitant]

REACTIONS (4)
  - Diabetes mellitus inadequate control [Unknown]
  - Lung infection [Unknown]
  - Malaise [Unknown]
  - Thrombosis [Unknown]
